FAERS Safety Report 13602363 (Version 1)
Quarter: 2017Q2

REPORT INFORMATION
  Report Type: Spontaneous
  Country: US (occurrence: US)
  Receive Date: 20170601
  Receipt Date: 20170601
  Transmission Date: 20170830
  Serious: No
  Sender: FDA-Public Use
  Company Number: US-009507513-1705USA007893

PATIENT
  Age: 10 Day
  Sex: Male

DRUGS (4)
  1. FUROSEMIDE. [Suspect]
     Active Substance: FUROSEMIDE
     Indication: OEDEMA
     Dosage: 2 MG/KG/DOSE, BID
     Route: 048
  2. ENALAPRIL [Concomitant]
     Active Substance: ENALAPRIL
     Dosage: 0.1 MG/KG,  A DAY IN TWO DIVIDED DOSES
     Route: 048
  3. CAPTOPRIL. [Concomitant]
     Active Substance: CAPTOPRIL
     Indication: RENOVASCULAR HYPERTENSION
     Dosage: 0.1 MG/KG, Q8H
  4. HYDRALAZINE [Concomitant]
     Active Substance: HYDRALAZINE HYDROCHLORIDE
     Indication: BLOOD PRESSURE SYSTOLIC ABNORMAL
     Dosage: 0.5 MG/KG/DOSE Q 4-6 H FOR SBP}100

REACTIONS (4)
  - Fluid retention [Recovered/Resolved]
  - Weight increased [Recovered/Resolved]
  - Urine flow decreased [Recovered/Resolved]
  - Drug effect incomplete [Unknown]
